FAERS Safety Report 8218670-9 (Version None)
Quarter: 2012Q1

REPORT INFORMATION
  Report Type: 
  Country: None (occurrence: None)
  Receive Date: 20120319
  Receipt Date: 20120309
  Transmission Date: 20120608
  Serious: Yes (Death)
  Sender: FDA-Public Use
  Company Number: GXKR2012DE001134

PATIENT

DRUGS (1)
  1. CLOZAPINE [Suspect]
     Indication: SCHIZOPHRENIA
     Dosage: 3 X 50 MG
     Route: 048
     Dates: start: 20110629, end: 20110811

REACTIONS (1)
  - AGRANULOCYTOSIS [None]
